FAERS Safety Report 8395324-X (Version None)
Quarter: 2012Q2

REPORT INFORMATION
  Report Type: 
  Country: None (occurrence: None)
  Receive Date: 20120530
  Receipt Date: 20120522
  Transmission Date: 20120825
  Serious: Yes (Other)
  Sender: FDA-Public Use
  Company Number: US-ASTRAZENECA-2012SE32760

PATIENT

DRUGS (1)
  1. FASLODEX [Suspect]
     Dosage: DAY 1, 15 AND 29 DAY
     Route: 030

REACTIONS (1)
  - DISEASE PROGRESSION [None]
